FAERS Safety Report 8567878-1 (Version None)
Quarter: 2012Q3

REPORT INFORMATION
  Report Type: 
  Country: None (occurrence: None)
  Receive Date: 20120803
  Receipt Date: 20120731
  Transmission Date: 20120928
  Serious: Yes (Hospitalization)
  Sender: FDA-Public Use
  Company Number: US-PFIZER INC-2012184466

PATIENT
  Sex: Male
  Weight: 96.145 kg

DRUGS (14)
  1. PREDNISONE [Concomitant]
     Indication: PROPHYLAXIS AGAINST TRANSPLANT REJECTION
     Dosage: UNK
     Dates: start: 20110528
  2. FLOMAX [Concomitant]
     Indication: PROSTATOMEGALY
     Dosage: UNK
  3. CIPROFLOXACIN [Concomitant]
     Indication: PROPHYLAXIS
     Dosage: UNK
     Dates: start: 20120720
  4. ACETYLSALICYLIC ACID [Concomitant]
     Indication: PROPHYLAXIS
     Dosage: UNK
  5. SIROLIMUS [Suspect]
     Indication: RENAL TRANSPLANT
     Dosage: 4 MG, DAILY
     Route: 048
     Dates: start: 20110915
  6. CELLCEPT [Concomitant]
     Indication: PROPHYLAXIS AGAINST TRANSPLANT REJECTION
     Dosage: UNK
     Dates: start: 20110525
  7. NIFEREX [Concomitant]
     Indication: ANAEMIA
     Dosage: UNK
     Dates: start: 20110530
  8. OMEPRAZOLE [Concomitant]
     Indication: PROPHYLAXIS
     Dosage: UNK
     Dates: start: 20110530
  9. WELLBUTRIN [Concomitant]
     Indication: DEPRESSION
     Dosage: UNK
  10. MULTI-VITAMINS [Concomitant]
     Indication: SUPPLEMENTATION THERAPY
     Dosage: UNK
     Dates: start: 20110530
  11. POTASSIUM PHOSPHATE [Concomitant]
     Indication: PROPHYLAXIS
     Dosage: UNK
  12. SIROLIMUS [Suspect]
     Indication: IMMUNOSUPPRESSION
  13. FOLIC ACID [Concomitant]
     Indication: ANAEMIA
     Dosage: UNK
     Dates: start: 20110530
  14. NORVASC [Concomitant]
     Indication: HYPERTENSION
     Dosage: UNK

REACTIONS (1)
  - RENAL FAILURE ACUTE [None]
